FAERS Safety Report 9759809 (Version 2)
Quarter: 2014Q1

REPORT INFORMATION
  Report Type: Spontaneous
  Country: US (occurrence: US)
  Receive Date: 20131216
  Receipt Date: 20140127
  Transmission Date: 20141002
  Serious: Yes (Hospitalization, Other)
  Sender: FDA-Public Use
  Company Number: US-PFIZER INC-2013354365

PATIENT
  Age: 44 Year
  Sex: Female
  Weight: 70.3 kg

DRUGS (1)
  1. REVATIO [Suspect]
     Indication: CARDIAC FAILURE CONGESTIVE
     Dosage: 20 MG, 2X/DAY
     Route: 048
     Dates: start: 20130512

REACTIONS (4)
  - Malaise [Unknown]
  - Cough [Unknown]
  - Weight increased [Unknown]
  - Off label use [Unknown]
